FAERS Safety Report 23977377 (Version 1)
Quarter: 2024Q2

REPORT INFORMATION
  Report Type: Spontaneous
  Country: IL (occurrence: IL)
  Receive Date: 20240614
  Receipt Date: 20240614
  Transmission Date: 20240716
  Serious: Yes (Hospitalization, Other)
  Sender: FDA-Public Use
  Company Number: IL-ELI_LILLY_AND_COMPANY-IL202406005389

PATIENT
  Sex: Female

DRUGS (1)
  1. ABEMACICLIB [Suspect]
     Active Substance: ABEMACICLIB
     Indication: Product used for unknown indication
     Dosage: 150 MG, BID
     Route: 065

REACTIONS (9)
  - Hyperkalaemia [Unknown]
  - Cellulitis [Unknown]
  - Neutropenia [Unknown]
  - Hot flush [Unknown]
  - Pyrexia [Unknown]
  - Drug intolerance [Unknown]
  - Fatigue [Unknown]
  - Nausea [Unknown]
  - Urinary tract infection [Unknown]
